FAERS Safety Report 8127604-7 (Version None)
Quarter: 2011Q4

REPORT INFORMATION
  Report Type: 
  Country: None (occurrence: None)
  Receive Date: 20111227
  Receipt Date: 20111101
  Transmission Date: 20120403
  Serious: No
  Sender: FDA-Public Use
  Company Number: PHEH2011US08443

PATIENT
  Sex: Male

DRUGS (1)
  1. GILENYA [Suspect]
     Indication: MULTIPLE SCLEROSIS RELAPSE
     Dosage: 0.5 MG, QD, ORAL
     Route: 048
     Dates: start: 20110908, end: 20111027

REACTIONS (4)
  - FATIGUE [None]
  - HEMIPARESIS [None]
  - HYPOAESTHESIA [None]
  - PARAESTHESIA [None]
